FAERS Safety Report 12462719 (Version 1)
Quarter: 2016Q2

REPORT INFORMATION
  Report Type: Spontaneous
  Country: US (occurrence: US)
  Receive Date: 20160614
  Receipt Date: 20160614
  Transmission Date: 20160815
  Serious: Yes (Other)
  Sender: FDA-Public Use
  Company Number: US-JNJFOC-20160418537

PATIENT
  Age: 7 Decade
  Sex: Male

DRUGS (1)
  1. INVOKANA [Suspect]
     Active Substance: CANAGLIFLOZIN
     Indication: TYPE 2 DIABETES MELLITUS
     Route: 048

REACTIONS (6)
  - Hyperkalaemia [Unknown]
  - Dehydration [Unknown]
  - Glomerular filtration rate decreased [Unknown]
  - Acute prerenal failure [Unknown]
  - Glycosylated haemoglobin increased [Unknown]
  - Adverse drug reaction [Unknown]
